FAERS Safety Report 15469640 (Version 1)
Quarter: 2018Q4

REPORT INFORMATION
  Report Type: Spontaneous
  Country: US (occurrence: US)
  Receive Date: 20181005
  Receipt Date: 20181005
  Transmission Date: 20190205
  Serious: No
  Sender: FDA-Public Use
  Company Number: US-SA-2018SA272597

PATIENT
  Sex: Female

DRUGS (4)
  1. HUMALOG MIX [Concomitant]
     Active Substance: INSULIN LISPRO
  2. TRESIBA [Concomitant]
     Active Substance: INSULIN DEGLUDEC
     Dosage: UNK
     Dates: start: 20180903
  3. LANTUS [Concomitant]
     Active Substance: INSULIN GLARGINE
  4. PRALUENT [Suspect]
     Active Substance: ALIROCUMAB
     Indication: TYPE IIA HYPERLIPIDAEMIA
     Dosage: 75 MG, QOW
     Route: 058

REACTIONS (5)
  - Musculoskeletal discomfort [Unknown]
  - Hypoaesthesia [Unknown]
  - Paraesthesia [Unknown]
  - Blood glucose increased [Not Recovered/Not Resolved]
  - Sleep disorder [Not Recovered/Not Resolved]
